FAERS Safety Report 8354273-3 (Version None)
Quarter: 2012Q2

REPORT INFORMATION
  Report Type: 
  Country: None (occurrence: None)
  Receive Date: 20120511
  Receipt Date: 20120509
  Transmission Date: 20120825
  Serious: Yes (Life-Threatening, Hospitalization)
  Sender: FDA-Public Use
  Company Number: FR-ROCHE-784766

PATIENT
  Sex: Female
  Weight: 73 kg

DRUGS (13)
  1. SUFENTANIL [Concomitant]
     Dates: start: 20110620, end: 20110620
  2. FLUOROURACIL AND FLUOROURACIL [Suspect]
     Indication: BREAST CANCER
     Dosage: DATE OF LAST DOSE: 06 JAN 2009
     Route: 042
  3. PERINDOPRIL ERBUMINE [Concomitant]
     Dates: start: 20110623, end: 20110729
  4. AVASTIN [Suspect]
     Indication: BREAST CANCER
     Dosage: DATE OF LAST DOSE: 17 NOV 2009
     Route: 042
  5. EPINEPHRINE [Concomitant]
     Dates: start: 20110620, end: 20110620
  6. AMIODARONE HCL [Concomitant]
     Dates: start: 20110620, end: 20110620
  7. KETAMINE [Concomitant]
     Dates: start: 20110620, end: 20110620
  8. EPIRUBICIN HYDROCHLORIDE AND EPIRUBICIN HYDROCHLORIDE [Suspect]
     Indication: BREAST CANCER
     Dosage: DATE OF LAST DOSE: 09 JAN 2009
     Route: 042
  9. CYCLOPHOSPHAMIDE AND CYCLOPHOSPHAMIDE [Suspect]
     Indication: BREAST CANCER
     Dosage: DATE OF LAST DOSE: 06 JAN 2009
     Route: 042
  10. DOCETAXEL [Suspect]
     Indication: BREAST CANCER
     Dosage: DATE OF LAST DOSE: 10 MAR 2009
     Route: 042
  11. ATROPINE [Concomitant]
     Dates: start: 20110620, end: 20110620
  12. BISOPROLOL FUMARATE [Concomitant]
     Dosage: 2, 25 MG
     Dates: start: 20110627, end: 20110729
  13. PROPOFOL [Concomitant]
     Dates: start: 20110620, end: 20110620

REACTIONS (1)
  - CARDIAC ARREST [None]
